FAERS Safety Report 15241918 (Version 1)
Quarter: 2018Q3

REPORT INFORMATION
  Report Type: Spontaneous
  Country: JP (occurrence: JP)
  Receive Date: 20180806
  Receipt Date: 20180806
  Transmission Date: 20181010
  Serious: Yes (Hospitalization, Other)
  Sender: FDA-Public Use
  Company Number: JP-RICON PHARMA, LLC-RIC201807-000778

PATIENT
  Age: 63 Year
  Sex: Male

DRUGS (2)
  1. BETAMETHASONE VALERATE. [Suspect]
     Active Substance: BETAMETHASONE VALERATE
     Route: 042
  2. GLYCERIN. [Concomitant]
     Active Substance: GLYCERIN
     Dosage: 400 ML OF 10%
     Route: 042

REACTIONS (3)
  - Respiratory failure [Recovered/Resolved with Sequelae]
  - Condition aggravated [Recovered/Resolved with Sequelae]
  - Paralysis [Recovered/Resolved with Sequelae]
